FAERS Safety Report 20073852 (Version 2)
Quarter: 2021Q4

REPORT INFORMATION
  Report Type: Spontaneous
  Country: US (occurrence: US)
  Receive Date: 20211116
  Receipt Date: 20211217
  Transmission Date: 20220304
  Serious: No
  Sender: FDA-Public Use
  Company Number: US-ALLERGAN-2049161US

PATIENT
  Age: 72 Year
  Sex: Female

DRUGS (8)
  1. PRED FORTE [Suspect]
     Active Substance: PREDNISOLONE ACETATE
     Indication: Eye inflammation
     Dosage: 1 GTT, 5 X/DAY
     Route: 047
  2. PRED FORTE [Suspect]
     Active Substance: PREDNISOLONE ACETATE
     Indication: Uveitis
     Dosage: 1 GTT, 7 X/DAY
     Route: 047
     Dates: start: 201908
  3. PRED FORTE [Suspect]
     Active Substance: PREDNISOLONE ACETATE
     Dosage: UNK
     Dates: start: 20160218
  4. PRED FORTE [Suspect]
     Active Substance: PREDNISOLONE ACETATE
     Dosage: UNK
     Route: 047
     Dates: start: 2015
  5. ALPHAGAN P [Suspect]
     Active Substance: BRIMONIDINE TARTRATE
     Indication: Glaucoma
     Dosage: 2 GTT, TID
     Route: 047
     Dates: start: 2010
  6. AZOPT [Concomitant]
     Active Substance: BRINZOLAMIDE
     Indication: Glaucoma
     Dosage: 2 GTT, TID
     Route: 047
  7. LATANOPROST [Concomitant]
     Active Substance: LATANOPROST
     Indication: Glaucoma
     Dosage: 1 GTT, QHS
     Route: 047
  8. TOBRADEX [Concomitant]
     Active Substance: DEXAMETHASONE\TOBRAMYCIN
     Indication: Product used for unknown indication
     Dosage: 1 GTT, QHS
     Route: 047

REACTIONS (5)
  - Dysphonia [Not Recovered/Not Resolved]
  - Cataract [Recovered/Resolved]
  - Visual impairment [Recovered/Resolved]
  - Off label use [Unknown]
  - Rash [Unknown]

NARRATIVE: CASE EVENT DATE: 20190101
